FAERS Safety Report 14786606 (Version 5)
Quarter: 2018Q4

REPORT INFORMATION
  Report Type: Spontaneous
  Country: US (occurrence: US)
  Receive Date: 20180420
  Receipt Date: 20181022
  Transmission Date: 20190204
  Serious: Yes (Other)
  Sender: FDA-Public Use
  Company Number: US-SA-2018SA074122

PATIENT
  Age: 47 Year
  Sex: Male

DRUGS (18)
  1. FLEXERIL [CYCLOBENZAPRINE HYDROCHLORIDE] [Concomitant]
  2. RECLAST [Concomitant]
     Active Substance: ZOLEDRONIC ACID
  3. NAPROSYN [NAPROXEN] [Concomitant]
  4. XELJANZ [Suspect]
     Active Substance: TOFACITINIB CITRATE
     Indication: RHEUMATOID ARTHRITIS
     Dosage: UNK UNK,UNK
     Route: 065
  5. CIMZIA [Suspect]
     Active Substance: CERTOLIZUMAB PEGOL
     Indication: RHEUMATOID ARTHRITIS
     Dosage: UNK UNK,UNK
     Route: 065
  6. METOPROLOL SUCCINATE. [Concomitant]
     Active Substance: METOPROLOL SUCCINATE
  7. PREDNISONE. [Concomitant]
     Active Substance: PREDNISONE
  8. SIMPONI [Suspect]
     Active Substance: GOLIMUMAB
     Indication: RHEUMATOID ARTHRITIS
     Dosage: UNK UNK,UNK
     Route: 065
  9. HUMIRA [Suspect]
     Active Substance: ADALIMUMAB
     Dosage: 40 MG, QW
     Route: 058
     Dates: start: 20171213
  10. LISINOPRIL. [Concomitant]
     Active Substance: LISINOPRIL
  11. KEVZARA [Suspect]
     Active Substance: SARILUMAB
     Indication: RHEUMATOID ARTHRITIS
     Dosage: UNK
     Route: 058
     Dates: start: 201708, end: 201711
  12. ENBREL [Suspect]
     Active Substance: ETANERCEPT
     Indication: RHEUMATOID ARTHRITIS
     Dosage: UNK UNK, UNK
  13. HUMIRA [Suspect]
     Active Substance: ADALIMUMAB
     Indication: RHEUMATOID ARTHRITIS
     Dosage: 40 MG,QOW
     Route: 058
     Dates: start: 2012, end: 2012
  14. CALCIUM GLUCONATE. [Concomitant]
     Active Substance: CALCIUM GLUCONATE
  15. KEVZARA [Suspect]
     Active Substance: SARILUMAB
     Dosage: UNK UNK,UNK
     Route: 058
     Dates: start: 2017, end: 2017
  16. HUMIRA [Suspect]
     Active Substance: ADALIMUMAB
     Dosage: 40 MG,QW
     Route: 058
     Dates: start: 2012
  17. FISH OIL [COD-LIVER OIL] [Concomitant]
  18. VITAMIN D [ERGOCALCIFEROL] [Concomitant]

REACTIONS (10)
  - Procedural pain [Unknown]
  - Drug effect decreased [Unknown]
  - Drug ineffective [Unknown]
  - Rheumatoid arthritis [Not Recovered/Not Resolved]
  - Post procedural complication [Unknown]
  - Feeling abnormal [Unknown]
  - Drug effect decreased [Unknown]
  - Rheumatoid arthritis [Recovered/Resolved]
  - Rotator cuff syndrome [Not Recovered/Not Resolved]
  - Insomnia [Unknown]

NARRATIVE: CASE EVENT DATE: 2012
